FAERS Safety Report 9317010 (Version 2)
Quarter: 2013Q2

REPORT INFORMATION
  Report Type: Spontaneous
  Country: IT (occurrence: None)
  Receive Date: 20130523
  Receipt Date: 20130531
  Transmission Date: 20140414
  Serious: Yes (Other)
  Sender: FDA-Public Use
  Company Number: AUR-APL-2013-04233

PATIENT
  Age: 62 Year
  Sex: Female

DRUGS (2)
  1. RAMIPRIL (RAMIPRIL) [Suspect]
     Indication: HYPERTENSION
     Dosage: 2.5MG (2.5MG, 1 IN 1D) ORAL
     Route: 048
     Dates: start: 20130125, end: 20130301
  2. NEBIVOLOL (NEBIVOLOL) [Concomitant]

REACTIONS (3)
  - Rash [None]
  - Oedema peripheral [None]
  - Face oedema [None]
